FAERS Safety Report 5698080-9 (Version None)
Quarter: 2008Q2

REPORT INFORMATION
  Report Type: 
  Country: None (occurrence: None)
  Receive Date: 20080408
  Receipt Date: 20080326
  Transmission Date: 20081010
  Serious: Yes (Hospitalization)
  Sender: FDA-Public Use
  Company Number: US-ELI_LILLY_AND_COMPANY-US200803005990

PATIENT
  Sex: Female
  Weight: 86.168 kg

DRUGS (4)
  1. BYETTA [Suspect]
     Dosage: 10 UG, 2/D
     Route: 058
     Dates: start: 20050101, end: 20050101
  2. BYETTA [Suspect]
     Dosage: 5 UG, 2/D
     Route: 058
     Dates: start: 20050101
  3. GLUCOPHAGE [Concomitant]
  4. GLYBURIDE [Concomitant]

REACTIONS (9)
  - ARTHRALGIA [None]
  - ARTHRITIS [None]
  - BLOOD GLUCOSE DECREASED [None]
  - DYSPEPSIA [None]
  - HYPERHIDROSIS [None]
  - HYPOAESTHESIA ORAL [None]
  - PERIARTHRITIS [None]
  - TREMOR [None]
  - WEIGHT DECREASED [None]
